FAERS Safety Report 25012223 (Version 2)
Quarter: 2025Q1

REPORT INFORMATION
  Report Type: Report from Study
  Country: RO (occurrence: RO)
  Receive Date: 20250226
  Receipt Date: 20250228
  Transmission Date: 20250409
  Serious: Yes (Hospitalization, Other)
  Sender: BIOVITRUM
  Company Number: RO-AstraZeneca-CH-00812523A

PATIENT
  Sex: Female

DRUGS (1)
  1. PALIVIZUMAB [Suspect]
     Active Substance: PALIVIZUMAB
     Indication: Premature baby
     Route: 030
     Dates: start: 202410, end: 20250131

REACTIONS (4)
  - Wheezing [Recovering/Resolving]
  - Respiratory failure [Recovering/Resolving]
  - Cough [Recovered/Resolved]
  - Hepatic steatosis [Recovering/Resolving]
